FAERS Safety Report 16632224 (Version 1)
Quarter: 2019Q3

REPORT INFORMATION
  Report Type: Spontaneous
  Country: US (occurrence: US)
  Receive Date: 20190725
  Receipt Date: 20190725
  Transmission Date: 20191004
  Serious: No
  Sender: FDA-Public Use
  Company Number: US-ABBVIE-19S-163-2613718-00

PATIENT
  Age: 61 Year
  Sex: Female
  Weight: 59.02 kg

DRUGS (2)
  1. SYNTHROID [Suspect]
     Active Substance: LEVOTHYROXINE SODIUM
     Indication: PRODUCT USED FOR UNKNOWN INDICATION
     Route: 048
  2. TIROSINT [Suspect]
     Active Substance: LEVOTHYROXINE SODIUM
     Indication: HYPOTHYROIDISM
     Route: 048
     Dates: start: 2012

REACTIONS (10)
  - Oropharyngeal discomfort [Unknown]
  - Alopecia [Unknown]
  - Product complaint [Unknown]
  - Palpitations [Unknown]
  - Dizziness [Unknown]
  - Pain in extremity [Unknown]
  - Product formulation issue [Unknown]
  - Product dose omission [Unknown]
  - Chest pain [Unknown]
  - Anxiety [Unknown]

NARRATIVE: CASE EVENT DATE: 201809
